FAERS Safety Report 8624238-2 (Version None)
Quarter: 2012Q3

REPORT INFORMATION
  Report Type: 
  Country: None (occurrence: None)
  Receive Date: 20120827
  Receipt Date: 20120822
  Transmission Date: 20120928
  Serious: Yes (Death, Other)
  Sender: FDA-Public Use
  Company Number: GB-ABBOTT-12P-167-0972128-00

PATIENT
  Age: 2 Year
  Sex: Female

DRUGS (1)
  1. IBUPROFEN [Suspect]
     Indication: VIRAL INFECTION

REACTIONS (4)
  - ASPHYXIA [None]
  - SEPSIS [None]
  - PNEUMONIA [None]
  - DYSPNOEA [None]
